FAERS Safety Report 20992558 (Version 1)
Quarter: 2022Q2

REPORT INFORMATION
  Report Type: Spontaneous
  Country: US (occurrence: US)
  Receive Date: 20220622
  Receipt Date: 20220622
  Transmission Date: 20220721
  Serious: No
  Sender: FDA-Public Use
  Company Number: US-BAYER-2022A085459

PATIENT
  Age: 57 Year
  Sex: Female

DRUGS (1)
  1. ESTRADIOL HEMIHYDRATE [Suspect]
     Active Substance: ESTRADIOL HEMIHYDRATE
     Dosage: 0.06 MG
     Route: 062

REACTIONS (5)
  - Product adhesion issue [None]
  - Device use issue [None]
  - Menstruation delayed [None]
  - Product dose omission issue [None]
  - Product physical issue [None]

NARRATIVE: CASE EVENT DATE: 20220601
